FAERS Safety Report 9580502 (Version 1)
Quarter: 2013Q3

REPORT INFORMATION
  Report Type: Spontaneous
  Country: US (occurrence: None)
  Receive Date: 20130916
  Receipt Date: 20130916
  Transmission Date: 20140515
  Serious: Yes (Other)
  Sender: FDA-Public Use
  Company Number: JPI-P-026496

PATIENT
  Age: 59 Year
  Sex: Female
  Weight: 122.47 kg

DRUGS (12)
  1. XYREM [Suspect]
     Indication: CATAPLEXY
     Route: 048
     Dates: start: 20050927
  2. XYREM [Suspect]
     Indication: SOMNOLENCE
     Route: 048
     Dates: start: 20050927
  3. LEVOTHYROXINE SODIUM [Concomitant]
  4. WARFARIN SODIUM [Concomitant]
  5. LANSOPRAZOLE [Concomitant]
  6. POTASSIUM CHLORIDE [Concomitant]
  7. FUROSEMIDE [Concomitant]
  8. METHOCARBAMOL [Concomitant]
  9. SIMVASTATIN [Concomitant]
  10. OMEGA 3 FATTY ACIDS [Concomitant]
  11. VITAMIN D3 [Concomitant]
  12. MILD STOOL SOFTNER [Concomitant]

REACTIONS (4)
  - Ankle fracture [None]
  - Fall [None]
  - Skin discolouration [None]
  - Pain [None]
